FAERS Safety Report 8373587-4 (Version None)
Quarter: 2012Q2

REPORT INFORMATION
  Report Type: 
  Country: None (occurrence: None)
  Receive Date: 20120521
  Receipt Date: 20111212
  Transmission Date: 20120825
  Serious: No
  Sender: FDA-Public Use
  Company Number: US-TEVA-2011004685

PATIENT
  Sex: Male
  Weight: 86.714 kg

DRUGS (10)
  1. ALLOPURINOL [Suspect]
     Dates: start: 20110822
  2. DEMEROL [Concomitant]
     Dates: start: 20110822
  3. NEULASTA [Concomitant]
     Dates: start: 20110824
  4. RITUXAN [Concomitant]
     Dates: start: 20110822
  5. TYLENOL [Concomitant]
     Dates: start: 20110822
  6. BENADRYL [Concomitant]
     Dates: start: 20110822
  7. DEXAMETHASONE [Concomitant]
     Dates: start: 20110822
  8. ALOXI [Concomitant]
     Dates: start: 20110822
  9. TREANDA [Suspect]
     Indication: MANTLE CELL LYMPHOMA
     Route: 042
     Dates: start: 20110822
  10. ATIVAN [Concomitant]
     Dates: start: 20110822

REACTIONS (1)
  - URTICARIA [None]
